FAERS Safety Report 12311343 (Version 1)
Quarter: 2016Q2

REPORT INFORMATION
  Report Type: Spontaneous
  Country: BA (occurrence: BA)
  Receive Date: 20160427
  Receipt Date: 20160427
  Transmission Date: 20160815
  Serious: Yes (Other)
  Sender: FDA-Public Use
  Company Number: BA-BAYER-2016-076896

PATIENT
  Age: 69 Year
  Sex: Male

DRUGS (1)
  1. ASPIRIN PROTECT [Suspect]
     Active Substance: ASPIRIN
     Dosage: 100 MG, QD

REACTIONS (5)
  - Urinary tract inflammation [None]
  - Pain in extremity [None]
  - Radial pulse abnormal [None]
  - Peripheral artery thrombosis [None]
  - Blood urine present [None]

NARRATIVE: CASE EVENT DATE: 201602
